FAERS Safety Report 5533170-2 (Version None)
Quarter: 2007Q4

REPORT INFORMATION
  Report Type: 
  Country: None (occurrence: None)
  Receive Date: 20071120
  Receipt Date: 20070905
  Transmission Date: 20080405
  Serious: No
  Sender: FDA-Public Use
  Company Number: WAES 0710USA05245

PATIENT
  Age: 58 Year
  Sex: Male
  Weight: 136.0791 kg

DRUGS (1)
  1. JANUVIA [Suspect]
     Indication: TYPE 2 DIABETES MELLITUS
     Dosage: PO
     Route: 048
     Dates: start: 20070401, end: 20070401

REACTIONS (1)
  - BLOOD GLUCOSE INCREASED [None]
